FAERS Safety Report 9709249 (Version 2)
Quarter: 2013Q4

REPORT INFORMATION
  Report Type: Report from Study
  Country: BR (occurrence: BR)
  Receive Date: 20131125
  Receipt Date: 20131125
  Transmission Date: 20140711
  Serious: Yes (Death, Hospitalization, Other)
  Sender: FDA-Public Use
  Company Number: BR-009507513-1006USA01306

PATIENT
  Age: 67 Year
  Sex: Male
  Weight: 51.7 kg

DRUGS (21)
  1. SIMVASTATIN [Suspect]
     Indication: ACUTE CORONARY SYNDROME
     Dosage: 40 MG, QD
     Route: 048
     Dates: start: 20091204, end: 20100602
  2. PLACEBO [Suspect]
     Indication: ACUTE CORONARY SYNDROME
     Dosage: 1 DF, QD
     Route: 048
     Dates: start: 20091204, end: 20100602
  3. PLACEBO [Suspect]
     Indication: ACUTE CORONARY SYNDROME
     Dosage: 1 DF, QD
     Route: 048
     Dates: start: 20091204, end: 20100602
  4. CAPTOPRIL [Concomitant]
     Dosage: 75 MG, QD
     Route: 048
     Dates: start: 20080107
  5. CAPTOPRIL [Concomitant]
     Dosage: 25 MG, QD
     Route: 048
     Dates: start: 20100613, end: 20100613
  6. CLOPIDOGREL BISULFATE [Concomitant]
     Dosage: 75 MG, QD
     Route: 048
     Dates: start: 20091129, end: 20100528
  7. SIMVASTATIN [Concomitant]
     Dosage: 40 MG, QD
     Route: 048
     Dates: start: 20080107, end: 20091203
  8. AAS [Concomitant]
     Dosage: 100 MG, QD
     Route: 048
     Dates: start: 20091202, end: 20100528
  9. PROPRANOLOL HYDROCHLORIDE [Concomitant]
     Dosage: 80 MG, QD
     Route: 048
     Dates: start: 20080107
  10. PROPRANOLOL HYDROCHLORIDE [Concomitant]
     Dosage: 40 MG, QD
     Route: 048
     Dates: start: 20100613, end: 20100613
  11. OMEPRAZOLE [Concomitant]
     Dosage: 40 MG, QD
     Route: 048
     Dates: start: 20100614, end: 20100615
  12. CLEXANE (ENOXAPARIN SODIUM) [Concomitant]
     Dosage: 80 MG, QD
     Route: 058
     Dates: start: 20100614, end: 20100615
  13. MORPHINE [Concomitant]
     Dosage: 4 MG, QD
     Route: 042
     Dates: start: 20100614, end: 20100615
  14. INSULIN [Concomitant]
     Dosage: 6 U, QD
     Route: 058
     Dates: start: 20100614, end: 20100614
  15. BROMOPRIDE [Concomitant]
     Dosage: 20 MG, QD
     Route: 048
     Dates: start: 20100614, end: 20100614
  16. DIPYRONE [Concomitant]
     Dosage: 1 G, QD
     Route: 042
     Dates: start: 20100614, end: 20100614
  17. CEPHALOTHIN SODIUM [Concomitant]
     Dosage: 2 G, QD
     Route: 042
     Dates: start: 20100614, end: 20100614
  18. RADIOGRAPHIC CONTRAST MEDIUM (UNSPECIFIED) [Concomitant]
     Dosage: 20 ML, QD
     Route: 048
     Dates: start: 20100607, end: 20100607
  19. RANITIDINE [Concomitant]
     Dosage: 50 MG, QD
     Route: 042
     Dates: start: 20100606, end: 20100606
  20. RANITIDINE [Concomitant]
     Dosage: 50 MG, QD
     Route: 042
     Dates: start: 20100607, end: 20100607
  21. TRAMADOL HYDROCHLORIDE [Concomitant]
     Dosage: 100 MG, QD
     Route: 048
     Dates: start: 20100528, end: 20100602

REACTIONS (2)
  - Adenocarcinoma gastric [Fatal]
  - Pneumonia [Unknown]
